FAERS Safety Report 9222271 (Version 2)
Quarter: 2013Q2

REPORT INFORMATION
  Report Type: Spontaneous
  Country: US (occurrence: None)
  Receive Date: 20130408
  Receipt Date: 20130501
  Transmission Date: 20140414
  Serious: Yes (Death, Hospitalization)
  Sender: FDA-Public Use
  Company Number: UTC-030964

PATIENT
  Age: 79 Year
  Sex: Female
  Weight: 54.5 kg

DRUGS (11)
  1. REMODULIN [Suspect]
     Indication: COR PULMONALE CHRONIC
     Dosage: 28.8 UG/KG (0.02 UG/KG, 1 IN 1 MIN), INTRAVENOUS DRIP
     Route: 041
     Dates: start: 20130114
  2. NON-TYVASO (SILDENAFIL) (UNKNOWN) (SILDENAFIL) [Suspect]
     Indication: PULMONARY ARTERIAL HYPERTENSION
     Dosage: 60 MG (20 MG, 3 IN 1 D)
     Dates: start: 200902
  3. NON-TYVASO (AMBRISENTAN) (UNKNOWN) (AMBRISENTAN) [Suspect]
     Indication: PULMONARY ARTERIAL HYPERTENSION
     Dosage: 10 MG (3 IN 1 D)
     Dates: start: 200710
  4. COUMADIN (WARFARIN SODIUM) (UNKNOWN) [Concomitant]
  5. POTASSIUM (UNKNOWN) [Concomitant]
  6. MAGNESIUM OXIDE (UNKNOWN) [Concomitant]
  7. LASIX (FUROSEMIDE) (UNKNOWN) [Concomitant]
  8. GLIPIZIDE (UNKNOWN) [Concomitant]
  9. ZYRTEC (CETIRIZINE HYDROCHLORIDE) (UNKNOWN) [Concomitant]
  10. ZOCOR (SIMVASTATIN) (UNKNOWN) [Concomitant]
  11. ASPIRIN (ACETYLSALICYLIC ACID) (UNKNOWN) [Concomitant]

REACTIONS (5)
  - Pulmonary arterial hypertension [None]
  - Atrial septal defect [None]
  - Cardiac failure chronic [None]
  - Pleural effusion [None]
  - Pericardial effusion [None]
